FAERS Safety Report 21267481 (Version 2)
Quarter: 2022Q3

REPORT INFORMATION
  Report Type: Spontaneous
  Country: US (occurrence: US)
  Receive Date: 20220829
  Receipt Date: 20220919
  Transmission Date: 20221027
  Serious: No
  Sender: FDA-Public Use
  Company Number: US-AURINIA PHARMACEUTICALS INC.-AUR-002163

PATIENT
  Age: 29 Year
  Sex: Male

DRUGS (2)
  1. LUPKYNIS [Suspect]
     Active Substance: VOCLOSPORIN
     Indication: Lupus nephritis
     Dosage: 23.7 MILLIGRAM, BID
     Route: 048
     Dates: start: 20220603
  2. LUPKYNIS [Suspect]
     Active Substance: VOCLOSPORIN
     Dosage: UNK
     Route: 048
     Dates: start: 20220622

REACTIONS (2)
  - Blood creatinine increased [Not Recovered/Not Resolved]
  - Laboratory test abnormal [Unknown]

NARRATIVE: CASE EVENT DATE: 20220601
